FAERS Safety Report 7701898-1 (Version None)
Quarter: 2011Q3

REPORT INFORMATION
  Report Type: 
  Country: None (occurrence: None)
  Receive Date: 20110822
  Receipt Date: 20110815
  Transmission Date: 20111222
  Serious: Yes (Hospitalization)
  Sender: FDA-Public Use
  Company Number: US-US-EMD SERONO, INC.-7057946

PATIENT
  Sex: Female

DRUGS (13)
  1. ZYPREXA [Concomitant]
  2. REBIF [Suspect]
     Indication: MULTIPLE SCLEROSIS
     Route: 058
     Dates: start: 20110418
  3. REBIF [Suspect]
     Route: 058
     Dates: end: 20110701
  4. NAPROXEN [Concomitant]
  5. LOVASTATIN [Concomitant]
  6. LITHIUM CARBONATE [Concomitant]
     Indication: BIPOLAR DISORDER
  7. ACTOS [Concomitant]
  8. ABILIFY [Concomitant]
  9. TRILEPTAL [Concomitant]
  10. METFORMIN HCL [Concomitant]
  11. COGENTIN [Concomitant]
  12. ZOLOFT [Concomitant]
  13. LUVOX [Concomitant]

REACTIONS (2)
  - SUICIDAL BEHAVIOUR [None]
  - DEPRESSION [None]
